FAERS Safety Report 8511999-6 (Version None)
Quarter: 2012Q3

REPORT INFORMATION
  Report Type: 
  Country: None (occurrence: None)
  Receive Date: 20120716
  Receipt Date: 20120709
  Transmission Date: 20120928
  Serious: Yes (Hospitalization, Other)
  Sender: FDA-Public Use
  Company Number: US-ASTRAZENECA-2012SE26031

PATIENT
  Age: 63 Year
  Sex: Female

DRUGS (15)
  1. LISINOPRIL AND HYDROCHLOROTHIAZIDE [Suspect]
     Dosage: 20/25 MG DAILY
     Route: 048
  2. COUMADIN [Concomitant]
  3. LISINOPRIL [Suspect]
     Route: 048
  4. DOCUSATE SODIUM [Concomitant]
     Route: 048
  5. ASPIRIN [Concomitant]
     Route: 048
  6. NICOTINE [Concomitant]
  7. LISINOPRIL AND HYDROCHLOROTHIAZIDE [Suspect]
     Dosage: 10+12.5 DAILY
     Route: 048
  8. LIPITOR [Concomitant]
  9. TDAP [Concomitant]
     Dates: start: 20111205
  10. PNEUMOVAX 23 [Concomitant]
     Dates: start: 20040101
  11. NEXIUM [Suspect]
     Route: 048
  12. ANTIBIOTICS [Concomitant]
  13. LISINOPRIL AND HYDROCHLOROTHIAZIDE [Suspect]
     Dosage: 20/25 MG TWO TIMES PER DAY
     Route: 048
  14. PLAVIX [Concomitant]
     Route: 048
  15. INFLUENZA VIRUS VACCINE [Concomitant]
     Dates: start: 20111118

REACTIONS (51)
  - CEREBROVASCULAR ACCIDENT [None]
  - SUBCUTANEOUS NODULE [None]
  - RHINORRHOEA [None]
  - SUBCUTANEOUS ABSCESS [None]
  - ABDOMINAL DISCOMFORT [None]
  - RHINITIS [None]
  - DIZZINESS [None]
  - BLOOD SODIUM DECREASED [None]
  - DERMATITIS CONTACT [None]
  - ARTHROPOD BITE [None]
  - HEADACHE [None]
  - HERPES ZOSTER [None]
  - MEMORY IMPAIRMENT [None]
  - BLOOD CHOLESTEROL INCREASED [None]
  - HYPERTENSION [None]
  - FATIGUE [None]
  - CHROMATURIA [None]
  - NAUSEA [None]
  - NASOPHARYNGITIS [None]
  - GASTROOESOPHAGEAL REFLUX DISEASE [None]
  - URINE LEUKOCYTE ESTERASE [None]
  - BLOOD POTASSIUM DECREASED [None]
  - PRESYNCOPE [None]
  - ARTHRALGIA [None]
  - UPPER RESPIRATORY TRACT INFECTION [None]
  - RASH [None]
  - CLAVICLE FRACTURE [None]
  - PAIN IN EXTREMITY [None]
  - HAEMORRHOIDS [None]
  - RHINITIS ALLERGIC [None]
  - BURSITIS [None]
  - NASAL CONGESTION [None]
  - BRONCHITIS [None]
  - EAR PAIN [None]
  - COUGH [None]
  - MUSCULOSKELETAL PAIN [None]
  - HAEMATURIA [None]
  - MUSCULAR WEAKNESS [None]
  - JOINT CREPITATION [None]
  - ROTATOR CUFF SYNDROME [None]
  - GASTRIC ULCER [None]
  - HYPERLIPIDAEMIA [None]
  - ARTHRITIS [None]
  - DEPRESSION [None]
  - DIARRHOEA [None]
  - INTENTIONAL DRUG MISUSE [None]
  - WHEEZING [None]
  - INCONTINENCE [None]
  - CAROTID ARTERY OCCLUSION [None]
  - VOMITING [None]
  - VISION BLURRED [None]
